FAERS Safety Report 17571533 (Version 1)
Quarter: 2020Q1

REPORT INFORMATION
  Report Type: Spontaneous
  Country: US (occurrence: US)
  Receive Date: 20200317
  Receipt Date: 20200317
  Transmission Date: 20200409
  Serious: Yes (Disabling)
  Sender: FDA-Public Use
  Company Number: None

PATIENT
  Age: 59 Year
  Sex: Female
  Weight: 61.23 kg

DRUGS (1)
  1. AIMOVIG [Suspect]
     Active Substance: ERENUMAB-AOOE
     Indication: MIGRAINE
     Dosage: ?          OTHER STRENGTH:70 MG X 2;QUANTITY:2;OTHER ROUTE:INJECTION THIGHS?
     Dates: end: 20191220

REACTIONS (9)
  - Pain [None]
  - Decreased appetite [None]
  - Constipation [None]
  - Abdominal pain [None]
  - Weight decreased [None]
  - Chest pain [None]
  - Rectal haemorrhage [None]
  - Spinal pain [None]
  - Abnormal faeces [None]
